FAERS Safety Report 7865675-3 (Version None)
Quarter: 2011Q4

REPORT INFORMATION
  Report Type: 
  Country: None (occurrence: None)
  Receive Date: 20111028
  Receipt Date: 20110204
  Transmission Date: 20120403
  Serious: No
  Sender: FDA-Public Use
  Company Number: US-GLAXOSMITHKLINE-A0911973A

PATIENT
  Age: 62 Year
  Sex: Female

DRUGS (2)
  1. ADVAIR DISKUS 100/50 [Suspect]
     Indication: BRONCHITIS
     Dosage: 1PUFF TWICE PER DAY
     Route: 055
     Dates: start: 20110202, end: 20110204
  2. AZITHROMYCIN [Concomitant]

REACTIONS (4)
  - COUGH [None]
  - WHEEZING [None]
  - ILL-DEFINED DISORDER [None]
  - HEADACHE [None]
